FAERS Safety Report 4808939-X (Version None)
Quarter: 2005Q4

REPORT INFORMATION
  Report Type: 
  Country: None (occurrence: None)
  Receive Date: 20051021
  Receipt Date: 20050308
  Transmission Date: 20060501
  Serious: Yes (Life-Threatening, Hospitalization)
  Sender: FDA-Public Use
  Company Number: EWC050343093

PATIENT
  Age: 49 Year
  Sex: Male

DRUGS (2)
  1. ZYPREXA [Suspect]
     Indication: DEPRESSION
     Dosage: 10 MG/1 DAY
     Route: 048
     Dates: start: 20010801
  2. ZYPREXA [Suspect]
     Indication: SCHIZOAFFECTIVE DISORDER
     Dosage: 10 MG/1 DAY
     Route: 048
     Dates: start: 20010801

REACTIONS (1)
  - PULMONARY EMBOLISM [None]
